FAERS Safety Report 6259208-5 (Version None)
Quarter: 2009Q3

REPORT INFORMATION
  Report Type: 
  Country: None (occurrence: None)
  Receive Date: 20090707
  Receipt Date: 20090625
  Transmission Date: 20100115
  Serious: Yes (Hospitalization)
  Sender: FDA-Public Use
  Company Number: FR-AVENTIS-200912361FR

PATIENT
  Age: 82 Year
  Sex: Female
  Weight: 58 kg

DRUGS (6)
  1. GLYBURIDE [Suspect]
     Route: 048
     Dates: end: 20090512
  2. GLUCOPHAGE [Suspect]
     Route: 048
     Dates: end: 20090512
  3. UMULINE                            /00646003/ [Concomitant]
     Indication: DRUG USE FOR UNKNOWN INDICATION
  4. CATAPRESSAN                        /00171101/ [Concomitant]
     Indication: DRUG USE FOR UNKNOWN INDICATION
  5. ZESTRIL [Concomitant]
     Indication: DRUG USE FOR UNKNOWN INDICATION
  6. FENOFIBRATE [Concomitant]
     Indication: DRUG USE FOR UNKNOWN INDICATION

REACTIONS (2)
  - METABOLIC ACIDOSIS [None]
  - RENAL FAILURE [None]
